FAERS Safety Report 8800955 (Version 1)
Quarter: 2012Q4

REPORT INFORMATION
  Report Type: 
  Country: JP (occurrence: JP)
  Receive Date: 20120920
  Receipt Date: 20120920
  Transmission Date: 20130627
  Serious: Yes (Hospitalization, Other)
  Sender: FDA-Public Use
  Company Number: JP-ROCHE-1112321

PATIENT
  Age: 66 Year
  Sex: Female
  Weight: 65 kg

DRUGS (7)
  1. AVASTIN [Suspect]
     Indication: BREAST CANCER METASTATIC
     Route: 041
     Dates: start: 20120717, end: 20120827
  2. TAXOL [Concomitant]
     Indication: BREAST CANCER METASTATIC
     Route: 041
     Dates: start: 20120717, end: 20120827
  3. ZOMETA [Concomitant]
     Indication: METASTASES TO BONE
     Dosage: Dosage is uncertain.
     Route: 041
     Dates: start: 20120508
  4. AMLODIN [Concomitant]
     Indication: HYPERTENSION
     Route: 048
  5. FENTOS [Concomitant]
     Indication: CANCER PAIN
     Route: 061
     Dates: start: 20120619
  6. DECADRON [Concomitant]
     Indication: PREMEDICATION
     Route: 041
     Dates: start: 20120717, end: 20120827
  7. ZANTAC [Concomitant]
     Indication: PREMEDICATION
     Route: 041
     Dates: start: 20120717, end: 20120827

REACTIONS (5)
  - Gastrointestinal perforation [Recovering/Resolving]
  - Pleural effusion [Unknown]
  - Pyrexia [Recovering/Resolving]
  - Rectal ulcer [Unknown]
  - Large intestinal ulcer [Unknown]
